FAERS Safety Report 8241959 (Version 2)
Quarter: 2020Q4

REPORT INFORMATION
  Report Type: Spontaneous
  Country: US (occurrence: US)
  Receive Date: 20111111
  Receipt Date: 20201215
  Transmission Date: 20210114
  Serious: Yes (Hospitalization, Other)
  Sender: FDA-Public Use
  Company Number: US-PFIZER INC-2011275106

PATIENT
  Age: 26 Year
  Sex: Male
  Weight: 92.97 kg

DRUGS (3)
  1. GEODON [Suspect]
     Active Substance: ZIPRASIDONE HYDROCHLORIDE\ZIPRASIDONE MESYLATE
     Indication: BIPOLAR DISORDER
     Dosage: 280 MG, DAILY(THREE 80MG TO TOTAL 280MG PLUS TWO 20MG ON TOP OF THAT)
     Route: 048
     Dates: start: 200807
  2. DEPAKOTE [Concomitant]
     Active Substance: DIVALPROEX SODIUM
     Indication: BIPOLAR DISORDER
     Dosage: 100 MG, DAILY
  3. GEODON [Suspect]
     Active Substance: ZIPRASIDONE HYDROCHLORIDE\ZIPRASIDONE MESYLATE
     Dosage: 80 MG, DAILY
     Route: 048
     Dates: start: 2009, end: 201007

REACTIONS (15)
  - Tinnitus [Recovered/Resolved]
  - Diarrhoea [Recovered/Resolved]
  - Impaired driving ability [Recovered/Resolved]
  - Grip strength decreased [Recovered/Resolved]
  - Dysgraphia [Recovered/Resolved]
  - Off label use [Unknown]
  - Urinary incontinence [Not Recovered/Not Resolved]
  - Cardiac disorder [Unknown]
  - Autonomic neuropathy [Not Recovered/Not Resolved]
  - Loss of personal independence in daily activities [Unknown]
  - Nerve injury [Unknown]
  - Toxicity to various agents [Unknown]
  - Abnormal behaviour [Recovered/Resolved]
  - Fatigue [Recovered/Resolved]
  - Visual impairment [Recovered/Resolved]

NARRATIVE: CASE EVENT DATE: 2008
